FAERS Safety Report 17201873 (Version 1)
Quarter: 2019Q4

REPORT INFORMATION
  Report Type: Spontaneous
  Country: US (occurrence: US)
  Receive Date: 20191226
  Receipt Date: 20191226
  Transmission Date: 20200122
  Serious: No
  Sender: FDA-Public Use
  Company Number: US-MYLANLABS-2019M1121341

PATIENT
  Age: 56 Year
  Sex: Female

DRUGS (2)
  1. ATENOLOL. [Concomitant]
     Active Substance: ATENOLOL
     Dosage: UNK
  2. WIXELA INHUB [Suspect]
     Active Substance: FLUTICASONE PROPIONATE\SALMETEROL XINAFOATE
     Indication: COUGH
     Dosage: UNK UNK, BID
     Dates: start: 201812

REACTIONS (2)
  - Off label use [Not Recovered/Not Resolved]
  - Tongue discomfort [Recovering/Resolving]

NARRATIVE: CASE EVENT DATE: 201812
